FAERS Safety Report 24163823 (Version 1)
Quarter: 2024Q3

REPORT INFORMATION
  Report Type: Spontaneous
  Country: CN (occurrence: CN)
  Receive Date: 20240801
  Receipt Date: 20240801
  Transmission Date: 20241016
  Serious: Yes (Life-Threatening, Hospitalization, Other)
  Sender: MERCK
  Company Number: CN-009507513-2407CHN014718

PATIENT
  Age: 85 Year
  Sex: Female

DRUGS (2)
  1. CILASTATIN SODIUM\IMIPENEM [Suspect]
     Active Substance: CILASTATIN SODIUM\IMIPENEM
     Indication: Anti-infective therapy
     Dosage: 0.5 G (1 BOTTLE), Q6H, IV DRIP
     Route: 041
     Dates: start: 20240714, end: 20240721
  2. SODIUM CHLORIDE [Concomitant]
     Active Substance: SODIUM CHLORIDE
     Dosage: 100 ML, Q6H, IV DRIP
     Route: 041
     Dates: start: 20240714

REACTIONS (5)
  - Depressed level of consciousness [Recovering/Resolving]
  - Gastrointestinal tube insertion [Unknown]
  - Muscle rigidity [Recovered/Resolved]
  - Muscle spasms [Recovered/Resolved]
  - Asthenia [Unknown]

NARRATIVE: CASE EVENT DATE: 20240701
